FAERS Safety Report 7995352-X (Version None)
Quarter: 2011Q4

REPORT INFORMATION
  Report Type: 
  Country: None (occurrence: None)
  Receive Date: 20111220
  Receipt Date: 20111212
  Transmission Date: 20120403
  Serious: Yes (Death, Hospitalization, Other)
  Sender: FDA-Public Use
  Company Number: JP-ROCHE-1022498

PATIENT
  Sex: Female
  Weight: 49 kg

DRUGS (3)
  1. XELODA [Suspect]
     Indication: RECTAL CANCER RECURRENT
     Route: 048
     Dates: start: 20111117, end: 20111124
  2. IRINOTECAN HCL [Concomitant]
     Indication: RECTAL CANCER RECURRENT
     Route: 041
     Dates: start: 20111117, end: 20111117
  3. AVASTIN [Suspect]
     Indication: RECTAL CANCER RECURRENT
     Route: 041
     Dates: start: 20111117, end: 20111117

REACTIONS (8)
  - ASPHYXIA [None]
  - RENAL IMPAIRMENT [None]
  - SUBILEUS [None]
  - BLOOD GLUCOSE INCREASED [None]
  - VOMITING [None]
  - MALAISE [None]
  - ENTEROCOLITIS [None]
  - DIARRHOEA [None]
